FAERS Safety Report 7397457-3 (Version None)
Quarter: 2011Q2

REPORT INFORMATION
  Report Type: 
  Country: None (occurrence: None)
  Receive Date: 20110406
  Receipt Date: 20110323
  Transmission Date: 20111010
  Serious: Yes (Other)
  Sender: FDA-Public Use
  Company Number: PHHY2011US23858

PATIENT
  Sex: Female

DRUGS (6)
  1. SYNTHROID [Concomitant]
  2. CALTRATE [Concomitant]
  3. LISINOPRIL AND HYDROCHLOROTHIAZIDE [Concomitant]
  4. CALCIUM [Concomitant]
  5. VITAMIN D [Concomitant]
  6. RECLAST [Suspect]
     Dosage: 5 MG,
     Route: 042

REACTIONS (3)
  - ERYTHEMA [None]
  - ANAEMIA [None]
  - FRACTURE [None]
